FAERS Safety Report 8148686-2 (Version None)
Quarter: 2012Q1

REPORT INFORMATION
  Report Type: 
  Country: None (occurrence: None)
  Receive Date: 20120218
  Receipt Date: 20110628
  Transmission Date: 20120608
  Serious: No
  Sender: FDA-Public Use
  Company Number: US-ALLERGAN-1108757US

PATIENT
  Age: 52 Year
  Sex: Female

DRUGS (4)
  1. NEURONTIN [Concomitant]
     Indication: PRODUCT USED FOR UNKNOWN INDICATION
  2. BOTULINUM TOXIN TYPE A [Suspect]
     Indication: MIGRAINE
     Dosage: UNK
     Route: 030
     Dates: start: 20110621, end: 20110621
  3. RITALIN [Concomitant]
     Indication: PRODUCT USED FOR UNKNOWN INDICATION
  4. BACLOFEN [Concomitant]
     Indication: PRODUCT USED FOR UNKNOWN INDICATION

REACTIONS (2)
  - HYPOAESTHESIA ORAL [None]
  - HYPOAESTHESIA [None]
